FAERS Safety Report 6662134-0 (Version None)
Quarter: 2010Q1

REPORT INFORMATION
  Report Type: 
  Country: None (occurrence: None)
  Receive Date: 20100331
  Receipt Date: 20100330
  Transmission Date: 20100710
  Serious: Yes (Other)
  Sender: FDA-Public Use
  Company Number: US-MYLANLABS-2010S1004927

PATIENT
  Age: 18 Year
  Sex: Male
  Weight: 79.38 kg

DRUGS (4)
  1. AMNESTEEM [Suspect]
     Indication: ACNE CYSTIC
     Route: 048
     Dates: start: 20090601
  2. AMNESTEEM [Suspect]
     Indication: SCAR
     Route: 048
     Dates: start: 20090601
  3. AMNESTEEM [Suspect]
     Route: 048
     Dates: end: 20091201
  4. AMNESTEEM [Suspect]
     Route: 048
     Dates: end: 20091201

REACTIONS (4)
  - CONFUSIONAL STATE [None]
  - CONVULSION [None]
  - FEELING ABNORMAL [None]
  - MEMORY IMPAIRMENT [None]
